FAERS Safety Report 8732598 (Version 2)
Quarter: 2015Q2

REPORT INFORMATION
  Report Type: Spontaneous
  Country: AU (occurrence: AU)
  Receive Date: 20120820
  Receipt Date: 20150428
  Transmission Date: 20150821
  Serious: Yes (Death, Hospitalization)
  Sender: FDA-Public Use
  Company Number: AU-ASTRAZENECA-2012SE56052

PATIENT
  Age: 84 Year
  Sex: Male

DRUGS (1)
  1. ZOLADEX [Suspect]
     Active Substance: GOSERELIN ACETATE
     Route: 058
     Dates: start: 20110401

REACTIONS (2)
  - Chronic obstructive pulmonary disease [Recovering/Resolving]
  - Death [Fatal]

NARRATIVE: CASE EVENT DATE: 20120713
